FAERS Safety Report 19922685 (Version 1)
Quarter: 2021Q4

REPORT INFORMATION
  Report Type: Spontaneous
  Country: US (occurrence: US)
  Receive Date: 20211005
  Receipt Date: 20211005
  Transmission Date: 20220303
  Serious: No
  Sender: FDA-Public Use
  Company Number: US-AVEO ONCOLOGY-2021-AVEO-US003400

PATIENT

DRUGS (3)
  1. FOTIVDA [Suspect]
     Active Substance: TIVOZANIB HYDROCHLORIDE
     Indication: Renal cell carcinoma
     Dosage: .89 MG, DAILY FOR 21 DAYS OFF 7 DAYS
     Route: 048
  2. ROBINUL [Concomitant]
     Active Substance: GLYCOPYRROLATE
  3. Prostimen [Concomitant]

REACTIONS (2)
  - Therapy interrupted [Unknown]
  - Fatigue [Unknown]
